FAERS Safety Report 6460627-2 (Version None)
Quarter: 2009Q4

REPORT INFORMATION
  Report Type: 
  Country: None (occurrence: None)
  Receive Date: 20091130
  Receipt Date: 20091118
  Transmission Date: 20100525
  Serious: Yes (Hospitalization)
  Sender: FDA-Public Use
  Company Number: US-KINGPHARMUSA00001-K200901465

PATIENT
  Age: 61 Year
  Sex: Female
  Weight: 80.272 kg

DRUGS (14)
  1. LEVOXYL [Suspect]
     Indication: AUTOIMMUNE THYROIDITIS
     Dosage: 137 MCG, QD
     Route: 048
     Dates: start: 20020101, end: 20091024
  2. LEVOXYL [Interacting]
     Dosage: 75 MCG, QD
     Route: 048
     Dates: start: 20091029, end: 20091103
  3. LEVOXYL [Interacting]
     Dosage: 100 MCG, QD
     Route: 048
     Dates: start: 20091103, end: 20091109
  4. LEVOXYL [Interacting]
     Dosage: 125 MCG, QD
     Route: 048
     Dates: start: 20091109, end: 20091112
  5. LEVOXYL [Interacting]
     Dosage: 137 MCG, QD
     Route: 048
     Dates: start: 20091112
  6. KLONOPIN [Interacting]
     Indication: ANXIETY
     Dosage: 1 MG, BID
     Route: 048
     Dates: start: 20090824, end: 20090801
  7. KLONOPIN [Interacting]
     Indication: DRUG TOLERANCE
     Dosage: 1.0 MG, QD
     Route: 048
     Dates: start: 20090801
  8. KLONOPIN [Interacting]
     Dosage: 0.5 MG, BID
     Route: 048
     Dates: end: 20090901
  9. KLONOPIN [Interacting]
     Dosage: 0.5 MG, QD
     Route: 048
     Dates: start: 20090901, end: 20091001
  10. LEXAPRO [Interacting]
     Indication: ANXIETY
     Dosage: 20 MG, QD
     Route: 048
     Dates: start: 20091001, end: 20091025
  11. ATENOLOL [Concomitant]
     Dosage: 25 MG, QD
     Route: 048
  12. LIPITOR [Concomitant]
     Indication: HYPERCHOLESTEROLAEMIA
     Dosage: 10 MG, QD
     Route: 048
  13. CELEXA [Concomitant]
     Dosage: 20 MG, UNK
     Dates: end: 20090801
  14. ATIVAN [Concomitant]
     Indication: ANXIETY
     Dosage: UNK
     Dates: start: 20090716, end: 20090823

REACTIONS (6)
  - ANXIETY DISORDER [None]
  - BLOOD PRESSURE INCREASED [None]
  - DRUG INTERACTION [None]
  - HEART RATE INCREASED [None]
  - HYPERTHYROIDISM [None]
  - RESTLESSNESS [None]
